FAERS Safety Report 24110672 (Version 1)
Quarter: 2024Q3

REPORT INFORMATION
  Report Type: Spontaneous
  Country: FR (occurrence: FR)
  Receive Date: 20240718
  Receipt Date: 20240718
  Transmission Date: 20241016
  Serious: Yes (Other)
  Sender: TEVA
  Company Number: None

PATIENT
  Age: 1 Year
  Sex: Female
  Weight: 9 kg

DRUGS (6)
  1. AMOXICILLIN [Suspect]
     Active Substance: AMOXICILLIN
     Indication: Pneumonia
     Route: 048
     Dates: start: 20231127, end: 20231202
  2. BEXSERO [Suspect]
     Active Substance: NEISSERIA MENINGITIDIS GROUP B FHBP FUSION PROTEIN ANTIGEN\NEISSERIA MENINGITIDIS GROUP B NADA PROTE
     Indication: Immunisation
     Dosage: TIME INTERVAL: TOTAL: D3; BEXSERO. MENINGOCOCCAL GROUP B VACCINE (RDNA, COMPONENT, ADSORBED)
     Route: 030
     Dates: start: 20231204, end: 20231204
  3. TIXOCORTOL PIVALATE [Suspect]
     Active Substance: TIXOCORTOL PIVALATE
     Indication: Bronchiolitis
     Route: 045
     Dates: start: 20231127, end: 20231202
  4. PRIORIX [Suspect]
     Active Substance: MEASLES-MUMPS-RUBELLA VIRUS VACCINE
     Indication: Immunisation
     Dosage: TIME INTERVAL: TOTAL: D1; PRIORIX, MEASLES, MUMPS AND RUBELLA VACCINE VIVAN
     Route: 030
     Dates: start: 20231204, end: 20231204
  5. GELSEMIUM SEMPERVIRENS ROOT\GRINDELIA HIRSUTULA FLOWERING TOP\NIAOULI [Suspect]
     Active Substance: GELSEMIUM SEMPERVIRENS ROOT\GRINDELIA HIRSUTULA FLOWERING TOP\NIAOULI OIL
     Indication: Bronchiolitis
     Dosage: COQUELUSEDAL INFANTS,
     Route: 054
     Dates: start: 20231127, end: 20231202
  6. DOLIPRANE [Suspect]
     Active Substance: ACETAMINOPHEN
     Indication: Bronchiolitis
     Route: 048
     Dates: start: 20231127, end: 20231202

REACTIONS (1)
  - Angioedema [Recovering/Resolving]

NARRATIVE: CASE EVENT DATE: 20231205
